FAERS Safety Report 7610989-5 (Version None)
Quarter: 2011Q3

REPORT INFORMATION
  Report Type: 
  Country: None (occurrence: None)
  Receive Date: 20110715
  Receipt Date: 20110712
  Transmission Date: 20111222
  Serious: Yes (Other)
  Sender: FDA-Public Use
  Company Number: US-PFIZER INC-2011151042

PATIENT
  Sex: Female
  Weight: 72.562 kg

DRUGS (6)
  1. ESTRADIOL [Concomitant]
     Dosage: UNK, THREE TIMES A WEEK
  2. ASPIRIN [Concomitant]
     Dosage: 81 MG, 1X/DAY
  3. CHANTIX [Suspect]
     Indication: SMOKING CESSATION THERAPY
     Dosage: 0.5 MG, 1X/DAY
     Route: 048
     Dates: start: 20110414, end: 20110101
  4. CHANTIX [Suspect]
     Dosage: UNK
     Route: 048
     Dates: start: 20110101
  5. CHANTIX [Suspect]
     Dosage: 1 MG, 2X/DAY
     Route: 048
     Dates: start: 20110101, end: 20110101
  6. OMEPRAZOLE [Concomitant]
     Dosage: 20 MG, 1X/DAY

REACTIONS (6)
  - APHONIA [None]
  - DYSPHAGIA [None]
  - OROPHARYNGEAL PAIN [None]
  - NAUSEA [None]
  - THROAT IRRITATION [None]
  - DYSGEUSIA [None]
